FAERS Safety Report 7327003-1 (Version None)
Quarter: 2011Q1

REPORT INFORMATION
  Report Type: 
  Country: None (occurrence: None)
  Receive Date: 20110302
  Receipt Date: 20101129
  Transmission Date: 20110831
  Serious: Yes (Hospitalization)
  Sender: FDA-Public Use
  Company Number: US-BAXTER-2010BH022948

PATIENT
  Age: 60 Year
  Sex: Male

DRUGS (2)
  1. DIANEAL [Suspect]
     Indication: PERITONEAL DIALYSIS
     Route: 033
     Dates: start: 20100806
  2. DIANEAL [Suspect]
     Indication: RENAL FAILURE CHRONIC
     Route: 033
     Dates: start: 20100806

REACTIONS (4)
  - MUSCLE SPASMS [None]
  - ABDOMINAL PAIN UPPER [None]
  - PERITONEAL DIALYSIS COMPLICATION [None]
  - FUNGAL PERITONITIS [None]
